FAERS Safety Report 18121497 (Version 1)
Quarter: 2020Q3

REPORT INFORMATION
  Report Type: Spontaneous
  Country: US (occurrence: US)
  Receive Date: 20200806
  Receipt Date: 20200806
  Transmission Date: 20201103
  Serious: No
  Sender: FDA-Public Use
  Company Number: US-ASSERTIO THERAPEUTICS, INC.-US-2019DEP000589

PATIENT
  Age: 63 Year
  Sex: Male

DRUGS (2)
  1. CAMBIA [Suspect]
     Active Substance: DICLOFENAC POTASSIUM
     Indication: MIGRAINE WITHOUT AURA
     Dosage: 1 PACKET, PRN
     Route: 048
  2. GRALISE [Concomitant]
     Active Substance: GABAPENTIN
     Indication: PRODUCT USED FOR UNKNOWN INDICATION
     Dosage: UNK

REACTIONS (2)
  - Product use in unapproved indication [Unknown]
  - Product dose omission issue [Unknown]

NARRATIVE: CASE EVENT DATE: 20190618
